FAERS Safety Report 9924408 (Version 1)
Quarter: 2014Q1

REPORT INFORMATION
  Report Type: Spontaneous
  Country: US (occurrence: None)
  Receive Date: 20140220
  Receipt Date: 20140220
  Transmission Date: 20141002
  Serious: Yes (Other)
  Sender: FDA-Public Use
  Company Number: 14-00402

PATIENT
  Sex: Male

DRUGS (1)
  1. ASTHMANEFRIN INHALATION SOLUTION, 2.25% [Suspect]
     Indication: ASTHMA
     Dosage: 1 VIAL PRN 054
     Dates: start: 20140206

REACTIONS (6)
  - Hypoaesthesia oral [None]
  - Hypoaesthesia [None]
  - Dizziness [None]
  - Speech disorder [None]
  - No therapeutic response [None]
  - Dyspnoea [None]
